FAERS Safety Report 4519450-8 (Version None)
Quarter: 2004Q4

REPORT INFORMATION
  Report Type: 
  Country: None (occurrence: None)
  Receive Date: 20041202
  Receipt Date: 20041115
  Transmission Date: 20050328
  Serious: Yes (Death, Hospitalization)
  Sender: FDA-Public Use
  Company Number: 090-20785-04110644

PATIENT
  Age: 50 Year
  Sex: Male

DRUGS (1)
  1. THALOMID [Suspect]
     Indication: MULTIPLE MYELOMA
     Dosage: 400 MG, QD; ORAL
     Route: 048
     Dates: start: 20020101, end: 20020601

REACTIONS (14)
  - ACTIVATED PARTIAL THROMBOPLASTIN TIME PROLONGED [None]
  - BILIARY SEPSIS [None]
  - COMA [None]
  - CONDITION AGGRAVATED [None]
  - DIZZINESS [None]
  - EPISTAXIS [None]
  - HEPATITIS B [None]
  - INTERNATIONAL NORMALISED RATIO INCREASED [None]
  - KLEBSIELLA SEPSIS [None]
  - MALAISE [None]
  - PROTHROMBIN TIME PROLONGED [None]
  - SEPTIC SHOCK [None]
  - THROMBOCYTOPENIA [None]
  - VIRAL LOAD INCREASED [None]
